FAERS Safety Report 8862093 (Version 2)
Quarter: 2012Q4

REPORT INFORMATION
  Report Type: 
  Country: US (occurrence: US)
  Receive Date: 20121026
  Receipt Date: 20121220
  Transmission Date: 20130627
  Serious: No
  Sender: FDA-Public Use
  Company Number: US-PFIZER INC-2011132113

PATIENT
  Age: 82 Year
  Sex: Female

DRUGS (4)
  1. SUTENT [Suspect]
     Indication: METASTATIC RENAL CELL CARCINOMA
     Dosage: 50 mg, UNK (one cycle)
     Dates: start: 201010
  2. SUTENT [Suspect]
     Indication: RENAL CELL CARCINOMA
     Dosage: 25 mg, UNK
     Dates: start: 20110508, end: 20110604
  3. SUTENT [Suspect]
     Dosage: 25 mg, UNK
  4. SUTENT [Suspect]
     Dosage: 25 mg, 1x/day
     Dates: end: 201209

REACTIONS (5)
  - Lip swelling [Unknown]
  - Swollen tongue [Unknown]
  - Fatigue [Unknown]
  - Disease progression [Unknown]
  - Renal cell carcinoma [Unknown]
